FAERS Safety Report 25807268 (Version 1)
Quarter: 2025Q3

REPORT INFORMATION
  Report Type: Spontaneous
  Country: US (occurrence: None)
  Receive Date: 20250915
  Receipt Date: 20250915
  Transmission Date: 20251020
  Serious: Yes (Hospitalization)
  Sender: FDA-CTU
  Company Number: None

PATIENT
  Age: 26 Year
  Sex: Male

DRUGS (6)
  1. EPIDIOLEX [Suspect]
     Active Substance: CANNABIDIOL
     Indication: Idiopathic generalised epilepsy
     Dosage: FREQUENCY : TWICE A DAY;?
     Route: 048
     Dates: start: 20230621, end: 20250827
  2. Depakote 259mg [Concomitant]
  3. CLOBAZAM [Concomitant]
     Active Substance: CLOBAZAM
  4. LAMOTRIGINE [Concomitant]
     Active Substance: LAMOTRIGINE
  5. FLUTICASONE [Concomitant]
     Active Substance: FLUTICASONE
  6. XCO 150MGPN [Concomitant]

REACTIONS (6)
  - Drug ineffective [None]
  - Intentional product use issue [None]
  - Confusional state [None]
  - Diplopia [None]
  - Dizziness [None]
  - Hepatic enzyme increased [None]

NARRATIVE: CASE EVENT DATE: 20250814
